FAERS Safety Report 5956831-X (Version None)
Quarter: 2008Q4

REPORT INFORMATION
  Report Type: 
  Country: None (occurrence: None)
  Receive Date: 20081114
  Receipt Date: 20081114
  Transmission Date: 20090506
  Serious: Yes (Other)
  Sender: FDA-Public Use
  Company Number: None

PATIENT
  Age: 49 Year
  Sex: Female
  Weight: 56.6996 kg

DRUGS (1)
  1. METRONIDAZOLE [Suspect]
     Indication: AMOEBIASIS
     Dosage: 750MGS 3 X'S PER DAY PO
     Route: 048
     Dates: start: 20081105, end: 20081109

REACTIONS (5)
  - ANXIETY [None]
  - DEPRESSION [None]
  - NERVOUSNESS [None]
  - PANIC ATTACK [None]
  - TEARFULNESS [None]
